FAERS Safety Report 6185836-1 (Version None)
Quarter: 2009Q2

REPORT INFORMATION
  Report Type: 
  Country: None (occurrence: None)
  Receive Date: 20090511
  Receipt Date: 20090501
  Transmission Date: 20091009
  Serious: Yes (Hospitalization)
  Sender: FDA-Public Use
  Company Number: A0772579A

PATIENT
  Age: 69 Year
  Sex: Male
  Weight: 95.5 kg

DRUGS (9)
  1. AVANDIA [Suspect]
     Dosage: 8MG PER DAY
     Route: 048
     Dates: start: 20020715, end: 20050901
  2. ACTOS [Concomitant]
  3. METFORMIN HCL [Concomitant]
     Dates: end: 20050901
  4. GLUCOTROL [Concomitant]
  5. LOTREL [Concomitant]
  6. HYDROCHLOROTHIAZIDE [Concomitant]
  7. ALLOPURINOL [Concomitant]
  8. QUININE [Concomitant]
  9. FLOMAX [Concomitant]

REACTIONS (2)
  - CARDIAC FAILURE CONGESTIVE [None]
  - CARDIAC PACEMAKER INSERTION [None]
